FAERS Safety Report 5129336-6 (Version None)
Quarter: 2006Q4

REPORT INFORMATION
  Report Type: 
  Country: None (occurrence: None)
  Receive Date: 20061011
  Receipt Date: 20061002
  Transmission Date: 20070319
  Serious: Yes (Other)
  Sender: FDA-Public Use
  Company Number: 2006BH013688

PATIENT
  Sex: 0

DRUGS (1)
  1. DOPAMINE HCL IN 5% DEXTROSE [Suspect]
     Indication: MEDICATION ERROR
     Dosage: 125 ML; IV
     Route: 042

REACTIONS (5)
  - CIRCUMSTANCE OR INFORMATION CAPABLE OF LEADING TO MEDICATION ERROR [None]
  - HEART RATE INCREASED [None]
  - HYPERTENSION [None]
  - MEDICATION ERROR [None]
  - WRONG DRUG ADMINISTERED [None]
